FAERS Safety Report 26218508 (Version 1)
Quarter: 2025Q4

REPORT INFORMATION
  Report Type: Spontaneous
  Country: EU (occurrence: EU)
  Receive Date: 20251231
  Receipt Date: 20251231
  Transmission Date: 20260117
  Serious: Yes (Hospitalization, Other)
  Sender: PFIZER
  Company Number: None

PATIENT
  Age: 22 Year
  Sex: Male
  Weight: 100 kg

DRUGS (6)
  1. DOXORUBICIN HYDROCHLORIDE [Suspect]
     Active Substance: DOXORUBICIN HYDROCHLORIDE
     Indication: Ewing^s sarcoma
     Dosage: 75 MG, 1X/DAY
     Route: 042
     Dates: start: 20251208, end: 20251209
  2. CYCLOPHOSPHAMIDE [Concomitant]
     Active Substance: CYCLOPHOSPHAMIDE
     Indication: Ewing^s sarcoma
     Dosage: 2400 MG, 1X/DAY
     Route: 042
     Dates: start: 20251208, end: 20251208
  3. ONDANSETRON [Concomitant]
     Active Substance: ONDANSETRON
     Indication: Prophylaxis of nausea and vomiting
     Dosage: 8 MG, 1X/DAY
     Route: 042
     Dates: start: 20251208, end: 20251209
  4. MESNA [Concomitant]
     Active Substance: MESNA
     Indication: Ewing^s sarcoma
     Dosage: 1200 MG, 1X/DAY
     Route: 042
     Dates: start: 20251208, end: 20251208
  5. METHYLPREDNISOLONE [Concomitant]
     Active Substance: METHYLPREDNISOLONE
     Indication: Chemotherapy side effect prophylaxis
     Dosage: 60 MG, 1X/DAY
     Route: 042
     Dates: start: 20251208, end: 20251209
  6. VINCRISTINE SULFATE [Concomitant]
     Active Substance: VINCRISTINE SULFATE
     Indication: Ewing^s sarcoma
     Dosage: 2 MG, 1X/DAY
     Route: 042
     Dates: start: 20251208, end: 20251208

REACTIONS (1)
  - Toxic erythema of chemotherapy [Not Recovered/Not Resolved]

NARRATIVE: CASE EVENT DATE: 20251209
